FAERS Safety Report 11122431 (Version 1)
Quarter: 2015Q2

REPORT INFORMATION
  Report Type: Spontaneous
  Country: US (occurrence: None)
  Receive Date: 20150518
  Receipt Date: 20150518
  Transmission Date: 20150821
  Serious: No
  Sender: FDA-Public Use
  Company Number: None

PATIENT
  Age: 34 Year
  Sex: Female
  Weight: 97.52 kg

DRUGS (3)
  1. MIRVASO [Suspect]
     Active Substance: BRIMONIDINE TARTRATE
     Indication: ROSACEA
     Route: 061
     Dates: start: 20150330, end: 20150430
  2. IBUPROFEN. [Concomitant]
     Active Substance: IBUPROFEN
  3. GENERIC EXCEDRIN [Concomitant]

REACTIONS (5)
  - Rebound effect [None]
  - Erythema [None]
  - Swelling face [None]
  - Feeling hot [None]
  - Flushing [None]

NARRATIVE: CASE EVENT DATE: 20150331
